FAERS Safety Report 25175077 (Version 1)
Quarter: 2025Q2

REPORT INFORMATION
  Report Type: Report from Study
  Country: US (occurrence: US)
  Receive Date: 20250408
  Receipt Date: 20250408
  Transmission Date: 20250716
  Serious: Yes (Other)
  Sender: PFIZER
  Company Number: US-AMGEN-USASL2025063077

PATIENT
  Age: 70 Year
  Sex: Male

DRUGS (22)
  1. ENBREL [Suspect]
     Active Substance: ETANERCEPT
     Route: 065
     Dates: start: 201906, end: 201908
  2. METHOTREXATE SODIUM [Suspect]
     Active Substance: METHOTREXATE SODIUM
     Route: 065
     Dates: start: 201803, end: 201905
  3. METHOTREXATE SODIUM [Suspect]
     Active Substance: METHOTREXATE SODIUM
     Route: 065
     Dates: start: 202205, end: 202402
  4. OTEZLA [Suspect]
     Active Substance: APREMILAST
     Indication: Psoriatic arthropathy
     Dosage: 30 MG, 2X/DAY
     Route: 048
     Dates: start: 202104
  5. LEFLUNOMIDE [Suspect]
     Active Substance: LEFLUNOMIDE
     Route: 065
     Dates: start: 201910
  6. ZYLOPRIM [Concomitant]
     Active Substance: ALLOPURINOL
     Dosage: 300 MG, 1X/DAY
     Route: 065
     Dates: start: 20241209
  7. CARVEDILOL PHOSPHATE [Concomitant]
     Active Substance: CARVEDILOL PHOSPHATE
     Route: 048
  8. AVODART [Concomitant]
     Active Substance: DUTASTERIDE
     Dosage: 0.5 MG, 1X/DAY (EVERY MORNING)
     Route: 048
  9. FOLVITE [Concomitant]
     Active Substance: FOLIC ACID
     Dosage: 1 MG, 1X/DAY
     Route: 048
     Dates: start: 20230725
  10. COZAAR [Concomitant]
     Active Substance: LOSARTAN POTASSIUM
     Dosage: 100 MG, 1X/DAY
     Route: 048
  11. HYZAAR [Concomitant]
     Active Substance: HYDROCHLOROTHIAZIDE\LOSARTAN POTASSIUM
     Dosage: 1 DF, 1X/DAY
     Route: 048
     Dates: start: 20230622
  12. SINGULAIR [Concomitant]
     Active Substance: MONTELUKAST SODIUM
     Dosage: 10 MG, 1X/DAY (DAILY AT NIGHT)
     Route: 048
  13. PRILOSEC [Concomitant]
     Active Substance: OMEPRAZOLE MAGNESIUM
     Dosage: 40 MG, 1X/DAY
     Route: 048
  14. SKYRIZI [Concomitant]
     Active Substance: RISANKIZUMAB-RZAA
     Route: 058
     Dates: start: 20230323
  15. TADALAFIL [Concomitant]
     Active Substance: TADALAFIL
     Dosage: 5 MG, 1X/DAY
     Route: 048
  16. TUBERCULIN NOS [Concomitant]
     Active Substance: TUBERCULIN PURIFIED PROTEIN DERIVATIVE
     Route: 065
     Dates: start: 20240207
  17. CANNABIDIOL [Concomitant]
     Active Substance: CANNABIDIOL
     Indication: Sleep disorder
  18. COVID-19 VACCINE [Concomitant]
     Indication: COVID-19 immunisation
     Dates: start: 20210430, end: 20210430
  19. SULFASALAZINE DELAYED-RELEASE [Concomitant]
     Active Substance: SULFASALAZINE
     Route: 065
     Dates: start: 201905, end: 201908
  20. SECUKINUMAB [Concomitant]
     Active Substance: SECUKINUMAB
     Route: 065
     Dates: start: 201911, end: 202210
  21. USTEKINUMAB [Concomitant]
     Active Substance: USTEKINUMAB
     Route: 065
     Dates: start: 202212, end: 202402
  22. RISANKIZUMAB [Concomitant]
     Active Substance: RISANKIZUMAB
     Route: 065
     Dates: start: 202404

REACTIONS (6)
  - Polyarthritis [Unknown]
  - Osteoarthritis [Unknown]
  - Pain [Unknown]
  - Liver function test abnormal [Unknown]
  - Feeling abnormal [Unknown]
  - Gastrointestinal disorder [Unknown]
